FAERS Safety Report 6131184-5 (Version None)
Quarter: 2009Q1

REPORT INFORMATION
  Report Type: 
  Country: None (occurrence: None)
  Receive Date: 20090323
  Receipt Date: 20090311
  Transmission Date: 20090719
  Serious: Yes (Hospitalization)
  Sender: FDA-Public Use
  Company Number: 2008AP002655

PATIENT
  Age: 109 Year
  Sex: Female

DRUGS (1)
  1. CARBAMAZEPINE [Suspect]
     Indication: TRIGEMINAL NEURALGIA
     Dosage: 400 MG;QD

REACTIONS (11)
  - ATAXIA [None]
  - BRADYCARDIA [None]
  - DELIRIUM [None]
  - DEPRESSED MOOD [None]
  - DIZZINESS [None]
  - DRUG EFFECT DECREASED [None]
  - DRUG INEFFECTIVE [None]
  - DYSPHORIA [None]
  - FATIGUE [None]
  - HYPONATRAEMIA [None]
  - WEIGHT DECREASED [None]
